FAERS Safety Report 6800790-4 (Version None)
Quarter: 2010Q2

REPORT INFORMATION
  Report Type: 
  Country: None (occurrence: None)
  Receive Date: 20100624
  Receipt Date: 20100616
  Transmission Date: 20101027
  Serious: Yes (Death, Life-Threatening, Other)
  Sender: FDA-Public Use
  Company Number: 2008-04552

PATIENT
  Age: 76 Year
  Sex: Female
  Weight: 70 kg

DRUGS (22)
  1. VELCADE [Suspect]
     Indication: MULTIPLE MYELOMA
     Dosage: 1.8 MG, INTRAVENOUS
     Route: 042
     Dates: start: 20081021, end: 20081114
  2. DECADRON [Suspect]
     Indication: MULTIPLE MYELOMA
     Dosage: 20 MG, INTRAVENOUS
     Route: 042
     Dates: start: 20081028, end: 20081114
  3. LASIX [Suspect]
     Indication: RENAL IMPAIRMENT
     Dosage: 40 MG, ORAL
     Route: 048
     Dates: start: 20080402, end: 20081119
  4. VALTREX [Suspect]
     Indication: HERPES ZOSTER
     Dosage: 3G, ORAL
     Route: 048
     Dates: start: 20081114, end: 20081120
  5. ITRACONAZOLE [Suspect]
     Indication: PROPHYLAXIS
     Dosage: 200 MG, ORAL
     Route: 048
     Dates: start: 20080917, end: 20081119
  6. ETODOLAC [Concomitant]
  7. DUROTEP (FENTANYL) [Concomitant]
  8. OXYCONTIN [Concomitant]
  9. MEROPENEM [Concomitant]
  10. MORPHINE [Concomitant]
  11. ZOMETA [Concomitant]
  12. SOLDEM 3A (CARBOHYDRATES NOS, POTASSIUM CHLORIDE, SODIUM CHLORIDE, SOD [Concomitant]
  13. POTASSIUM CHLORIDE [Concomitant]
  14. LASIX [Concomitant]
  15. PREDOPA (DOPAMINE HYDROCHLORIDE) [Concomitant]
  16. ZANTAC /00550802/ (RANITIDINE HYDROCHLORIDE) [Concomitant]
  17. MUCOSTA (REBAMIPIDE) [Concomitant]
  18. COTRIM [Concomitant]
  19. ALLOPURINOL [Concomitant]
  20. SYAKUYAKUKANZOTO (HERBAL EXTRACT NOS) [Concomitant]
  21. TORSEMIDE [Concomitant]
  22. MAGMITT (MAGNESIUM OXIDE) [Concomitant]

REACTIONS (12)
  - ACUTE MYOCARDIAL INFARCTION [None]
  - ALTERED STATE OF CONSCIOUSNESS [None]
  - APPARENT LIFE THREATENING EVENT [None]
  - CEREBRAL INFARCTION [None]
  - HERPES ZOSTER [None]
  - HYPOKALAEMIA [None]
  - HYPONATRAEMIA [None]
  - METASTASES TO CENTRAL NERVOUS SYSTEM [None]
  - PLATELET COUNT DECREASED [None]
  - RENAL FAILURE ACUTE [None]
  - RESPIRATORY ARREST [None]
  - SUDDEN DEATH [None]
